FAERS Safety Report 17750267 (Version 2)
Quarter: 2020Q2

REPORT INFORMATION
  Report Type: Spontaneous
  Country: US (occurrence: US)
  Receive Date: 20200506
  Receipt Date: 20200609
  Transmission Date: 20200714
  Serious: No
  Sender: FDA-Public Use
  Company Number: US-PFIZER INC-2020178092

PATIENT
  Age: 58 Year
  Sex: Male
  Weight: 90.72 kg

DRUGS (2)
  1. LYRICA [Suspect]
     Active Substance: PREGABALIN
     Indication: TYPE 2 DIABETES MELLITUS
     Dosage: 200 MG, 2X/DAY
     Route: 048
     Dates: start: 20200526
  2. LYRICA [Suspect]
     Active Substance: PREGABALIN
     Indication: DIABETIC NEUROPATHY
     Dosage: 150 MG, 3X/DAY(150 MG THREE TIMES PER DAY BY MOUTH)
     Route: 048

REACTIONS (6)
  - Burning sensation [Unknown]
  - Feeling cold [Unknown]
  - Off label use [Unknown]
  - Diabetic foot [Unknown]
  - Paraesthesia [Unknown]
  - Condition aggravated [Unknown]
